FAERS Safety Report 17040562 (Version 6)
Quarter: 2020Q3

REPORT INFORMATION
  Report Type: Spontaneous
  Country: US (occurrence: US)
  Receive Date: 20191117
  Receipt Date: 20200914
  Transmission Date: 20201102
  Serious: Yes (Hospitalization)
  Sender: FDA-Public Use
  Company Number: US-LEXICON PHARMACEUTICALS, INC-19-1606-01014

PATIENT
  Age: 71 Year
  Sex: Female

DRUGS (3)
  1. XERMELO [Suspect]
     Active Substance: TELOTRISTAT ETHYL
     Indication: CARCINOID TUMOUR
     Dates: start: 20191016
  2. SANDOSTATIN [Concomitant]
     Active Substance: OCTREOTIDE ACETATE
     Indication: PRODUCT USED FOR UNKNOWN INDICATION
     Route: 065
  3. XERMELO [Suspect]
     Active Substance: TELOTRISTAT ETHYL
     Dates: start: 20200828

REACTIONS (9)
  - Shoulder operation [Unknown]
  - Flatulence [Not Recovered/Not Resolved]
  - Arthritis [Unknown]
  - Headache [Not Recovered/Not Resolved]
  - Off label use [Recovered/Resolved]
  - Influenza [Unknown]
  - Abdominal discomfort [Unknown]
  - Peripheral vascular disorder [Not Recovered/Not Resolved]
  - Arthralgia [Not Recovered/Not Resolved]

NARRATIVE: CASE EVENT DATE: 2019
